FAERS Safety Report 18384760 (Version 5)
Quarter: 2022Q1

REPORT INFORMATION
  Report Type: Report from Study
  Country: JP (occurrence: JP)
  Receive Date: 20201015
  Receipt Date: 20220315
  Transmission Date: 20220424
  Serious: Yes (Other)
  Sender: FDA-Public Use
  Company Number: None

PATIENT
  Age: 2 Month
  Sex: Female
  Weight: 3.5 kg

DRUGS (2)
  1. ZOLGENSMA [Suspect]
     Active Substance: ONASEMNOGENE ABEPARVOVEC-XIOI
     Indication: Spinal muscular atrophy
     Dosage: UNK
     Route: 041
     Dates: start: 20200917, end: 20200917
  2. PREDNISOLONE [Concomitant]
     Active Substance: PREDNISOLONE
     Indication: Product used for unknown indication
     Dosage: 1 MG/KG
     Route: 048
     Dates: start: 20200916

REACTIONS (6)
  - Apnoea [Recovered/Resolved]
  - Bradyarrhythmia [Recovered/Resolved]
  - Dyspnoea [Unknown]
  - Altered state of consciousness [Unknown]
  - Syncope [Unknown]
  - Increased upper airway secretion [Unknown]

NARRATIVE: CASE EVENT DATE: 20201007
